FAERS Safety Report 12385558 (Version 1)
Quarter: 2016Q2

REPORT INFORMATION
  Report Type: Spontaneous
  Country: GB (occurrence: GB)
  Receive Date: 20160519
  Receipt Date: 20160519
  Transmission Date: 20160815
  Serious: Yes (Death, Hospitalization, Other)
  Sender: FDA-Public Use
  Company Number: GB-GLAXOSMITHKLINE-B0440146A

PATIENT
  Age: 35 Year
  Sex: Female
  Weight: 59 kg

DRUGS (3)
  1. TRIZIVIR [Suspect]
     Active Substance: ABACAVIR SULFATE\LAMIVUDINE\ZIDOVUDINE
     Indication: HIV INFECTION
     Dosage: UNK
     Route: 048
     Dates: start: 20050324, end: 20050330
  2. PARACETAMOL [Suspect]
     Active Substance: ACETAMINOPHEN
     Indication: PRODUCT USED FOR UNKNOWN INDICATION
     Route: 065
  3. KIVEXA [Suspect]
     Active Substance: ABACAVIR SULFATE\LAMIVUDINE
     Indication: HIV INFECTION
     Route: 048

REACTIONS (43)
  - Hepatic necrosis [Unknown]
  - Cardiogenic shock [Unknown]
  - Swelling face [Not Recovered/Not Resolved]
  - Analgesic drug level increased [Unknown]
  - Dyspnoea [Unknown]
  - Respiratory rate increased [Unknown]
  - Heart rate increased [Unknown]
  - Tachycardia [Unknown]
  - Hepatic steatosis [Unknown]
  - Proteinuria [Unknown]
  - Perforated ulcer [Unknown]
  - Pulmonary embolism [Unknown]
  - Cardiac disorder [Not Recovered/Not Resolved]
  - Respiratory alkalosis [Unknown]
  - Cardiomegaly [Unknown]
  - Hepatic congestion [Unknown]
  - Myocardial infarction [Unknown]
  - Cardio-respiratory arrest [Unknown]
  - Abdominal pain [Unknown]
  - Pulmonary oedema [Unknown]
  - Blood pressure immeasurable [Unknown]
  - Depressed level of consciousness [Unknown]
  - Cardiac tamponade [Fatal]
  - Pericardial effusion [Fatal]
  - Gamma-glutamyltransferase increased [Unknown]
  - Malaise [Unknown]
  - Cold sweat [Unknown]
  - Rash vesicular [Unknown]
  - Hypersensitivity [Unknown]
  - Pyrexia [Unknown]
  - Cardiac failure [Not Recovered/Not Resolved]
  - HIV infection [Unknown]
  - Dyspnoea [Unknown]
  - Abdominal tenderness [Unknown]
  - Lip blister [Unknown]
  - Suprapubic pain [Unknown]
  - Hypovolaemia [Unknown]
  - Gastritis [Unknown]
  - Renal impairment [Unknown]
  - Chest pain [Unknown]
  - Rash [Unknown]
  - Rales [Unknown]
  - Rash papular [Unknown]

NARRATIVE: CASE EVENT DATE: 20050330
